APPROVED DRUG PRODUCT: CEFTAZIDIME SODIUM IN PLASTIC CONTAINER
Active Ingredient: CEFTAZIDIME SODIUM
Strength: EQ 20MG BASE/ML
Dosage Form/Route: INJECTABLE;INJECTION
Application: A063221 | Product #002
Applicant: BAXTER HEALTHCARE CORP
Approved: Apr 29, 1993 | RLD: No | RS: No | Type: DISCN